FAERS Safety Report 13073298 (Version 1)
Quarter: 2016Q4

REPORT INFORMATION
  Report Type: Report from Study
  Country: KR (occurrence: KR)
  Receive Date: 20161229
  Receipt Date: 20161229
  Transmission Date: 20170207
  Serious: Yes (Hospitalization)
  Sender: FDA-Public Use
  Company Number: KR-B.I. PHARMACEUTICALS,INC./RIDGEFIELD-2016-BI-087181

PATIENT
  Age: 67 Year
  Sex: Male
  Weight: 69 kg

DRUGS (14)
  1. HC [Concomitant]
     Indication: PROPHYLAXIS
     Dosage: 1 PERCENT
     Route: 065
     Dates: start: 20161121
  2. GRACIN [Concomitant]
     Indication: NEUTROPENIA
     Route: 065
  3. FERRUM KID [Concomitant]
     Indication: ANAEMIA
     Route: 065
     Dates: start: 20161212
  4. MAGACE F [Concomitant]
     Indication: PROPHYLAXIS
     Route: 048
     Dates: start: 20161128
  5. TAGAMET [Concomitant]
     Active Substance: CIMETIDINE
     Indication: PROPHYLAXIS
     Route: 065
     Dates: start: 20161121
  6. SMECTA [Concomitant]
     Active Substance: MONTMORILLONITE
     Indication: DIARRHOEA
     Route: 065
     Dates: start: 20161205
  7. AFATINIB [Suspect]
     Active Substance: AFATINIB
     Indication: GASTRIC CANCER
     Route: 048
     Dates: start: 20161121
  8. LOPERAMIDE [Concomitant]
     Active Substance: LOPERAMIDE
     Indication: PROPHYLAXIS
     Route: 048
     Dates: start: 20161121
  9. TAXOL [Suspect]
     Active Substance: PACLITAXEL
     Indication: PRODUCT USED FOR UNKNOWN INDICATION
     Dates: start: 20161212
  10. DEXAMETHASONE. [Concomitant]
     Active Substance: DEXAMETHASONE
     Indication: PROPHYLAXIS
     Route: 065
     Dates: start: 20161121
  11. STILNOX [Concomitant]
     Active Substance: ZOLPIDEM TARTRATE
     Indication: INSOMNIA
     Route: 048
     Dates: start: 20161212
  12. PERIRAMIN [Concomitant]
     Indication: PROPHYLAXIS
     Route: 065
     Dates: start: 20161121
  13. BEECOM HEXA [Concomitant]
     Indication: PROPHYLAXIS
     Route: 065
     Dates: start: 20161205
  14. FREAMINE III NOS [Concomitant]
     Active Substance: AMINO ACIDS
     Indication: PROPHYLAXIS
     Dosage: 8.5 PERCENT
     Route: 065
     Dates: start: 20161205

REACTIONS (1)
  - Anaemia [Recovered/Resolved]

NARRATIVE: CASE EVENT DATE: 20161222
